FAERS Safety Report 8786649 (Version 1)
Quarter: 2012Q4

REPORT INFORMATION
  Report Type: Report from Study
  Country: US (occurrence: US)
  Receive Date: 20120914
  Receipt Date: 20120914
  Transmission Date: 20130627
  Serious: No
  Sender: FDA-Public Use
  Company Number: US-VERTEX PHARMACEUTICAL INC.-AE-2012-011199

PATIENT
  Age: 51 Year
  Sex: Female
  Weight: 88.64 kg

DRUGS (6)
  1. INCIVEK [Suspect]
     Indication: HEPATITIS C
     Route: 048
  2. PEGASYS [Concomitant]
     Indication: HEPATITIS C
  3. RIBAPAK PAK [Concomitant]
     Indication: HEPATITIS C
     Route: 048
  4. PROCLICK [Concomitant]
     Route: 058
  5. AMLODIPINE [Concomitant]
     Route: 048
  6. WELLBUTRIN [Concomitant]
     Route: 048

REACTIONS (3)
  - Fatigue [Unknown]
  - Nausea [Recovered/Resolved]
  - Vomiting [Recovered/Resolved]
